FAERS Safety Report 9774179 (Version 3)
Quarter: 2014Q1

REPORT INFORMATION
  Report Type: Report from Study
  Country: DE (occurrence: DE)
  Receive Date: 20131220
  Receipt Date: 20140201
  Transmission Date: 20141002
  Serious: Yes (Hospitalization)
  Sender: FDA-Public Use
  Company Number: DE-ROCHE-1322267

PATIENT
  Age: 62 Year
  Sex: Female
  Weight: 75 kg

DRUGS (15)
  1. BEVACIZUMAB [Suspect]
     Indication: BREAST CANCER
     Route: 042
     Dates: start: 20131008, end: 20131008
  2. BEVACIZUMAB [Suspect]
     Route: 042
     Dates: start: 20131211, end: 20131211
  3. CAPECITABINE [Concomitant]
     Indication: BREAST CANCER
     Route: 048
     Dates: start: 20131008, end: 20131021
  4. CAPECITABINE [Concomitant]
     Route: 048
     Dates: start: 20131101, end: 20131114
  5. CAPECITABINE [Concomitant]
     Route: 048
     Dates: start: 20131120, end: 20131203
  6. VALSARTAN [Concomitant]
     Route: 048
     Dates: start: 1990, end: 20131111
  7. VALSARTAN [Concomitant]
     Route: 048
     Dates: start: 20131112
  8. L-THYROXIN [Concomitant]
     Indication: HYPOTHYROIDISM
     Route: 048
     Dates: start: 2000
  9. DEXAMETHASON [Concomitant]
     Indication: PREMEDICATION
     Route: 048
     Dates: start: 20131210
  10. DEXAMETHASON [Concomitant]
     Route: 042
     Dates: start: 20131211
  11. FENISTIL (GERMANY) [Concomitant]
     Indication: PREMEDICATION
     Route: 042
     Dates: start: 20131211
  12. RANITIDIN [Concomitant]
     Indication: PREMEDICATION
     Route: 042
     Dates: start: 20131211
  13. ALOXI [Concomitant]
     Indication: PREMEDICATION
     Route: 042
     Dates: start: 20131211
  14. PACLITAXEL [Concomitant]
     Indication: BREAST CANCER
     Dosage: MOST RECENT DOSE ON 27/DEC/2013.
     Route: 042
     Dates: start: 20131211
  15. INNOHEP [Concomitant]
     Indication: VENOUS THROMBOSIS
     Route: 058
     Dates: start: 20140109

REACTIONS (1)
  - General physical health deterioration [Recovered/Resolved]
